FAERS Safety Report 5600323-4 (Version None)
Quarter: 2008Q1

REPORT INFORMATION
  Report Type: 
  Country: None (occurrence: None)
  Receive Date: 20080123
  Receipt Date: 20080116
  Transmission Date: 20080703
  Serious: Yes (Other)
  Sender: FDA-Public Use
  Company Number: JP-ASTRAZENECA-2007AP08147

PATIENT
  Age: 77 Year
  Sex: Male

DRUGS (4)
  1. CRESTOR [Suspect]
     Indication: HYPERLIPIDAEMIA
     Route: 048
     Dates: start: 20070901, end: 20071220
  2. AMLODIPINE BESYLATE [Concomitant]
     Dosage: DOSE UNKNOWN
     Route: 048
     Dates: start: 20070701
  3. MICARDIS [Concomitant]
     Route: 048
     Dates: start: 20070701
  4. NOVOLIN R [Concomitant]
     Dosage: DOSE UNKNOWN
     Route: 058

REACTIONS (5)
  - ALANINE AMINOTRANSFERASE INCREASED [None]
  - ASPARTATE AMINOTRANSFERASE INCREASED [None]
  - JAUNDICE [None]
  - LIVER FUNCTION TEST ABNORMAL [None]
  - NEOPLASM MALIGNANT [None]
